FAERS Safety Report 23890523 (Version 11)
Quarter: 2025Q2

REPORT INFORMATION
  Report Type: Spontaneous
  Country: GB (occurrence: GB)
  Receive Date: 20240523
  Receipt Date: 20250625
  Transmission Date: 20250717
  Serious: Yes (Congenital Anomaly, Other)
  Sender: PFIZER
  Company Number: GB-MLMSERVICE-20240517-PI059713-00270-2

PATIENT
  Sex: Female
  Weight: 0.806 kg

DRUGS (9)
  1. RITUXIMAB [Suspect]
     Active Substance: RITUXIMAB
     Route: 064
  2. CYCLOPHOSPHAMIDE [Concomitant]
     Active Substance: CYCLOPHOSPHAMIDE
     Route: 064
  3. CEFUROXIME [Concomitant]
     Active Substance: CEFUROXIME
     Route: 064
  4. IRON [Concomitant]
     Active Substance: IRON
     Route: 064
  5. TAZOBACTAM [Concomitant]
     Active Substance: TAZOBACTAM
     Indication: Pneumonia
     Route: 064
  6. METHYLPREDNISOLONE [Concomitant]
     Active Substance: METHYLPREDNISOLONE
     Route: 064
  7. PREDNISOLONE [Concomitant]
     Active Substance: PREDNISOLONE
     Route: 064
  8. VALGANCICLOVIR [Concomitant]
     Active Substance: VALGANCICLOVIR
     Route: 064
  9. ACYCLOVIR [Concomitant]
     Active Substance: ACYCLOVIR
     Route: 064

REACTIONS (8)
  - Maternal exposure during pregnancy [Recovered/Resolved]
  - Congenital cytomegalovirus infection [Unknown]
  - Premature baby [Unknown]
  - Congenital anomaly [Unknown]
  - Deafness congenital [Unknown]
  - Foetal growth restriction [Unknown]
  - Low birth weight baby [Unknown]
  - Foetal exposure during pregnancy [Unknown]
